FAERS Safety Report 14897591 (Version 1)
Quarter: 2018Q2

REPORT INFORMATION
  Report Type: Spontaneous
  Country: None (occurrence: US)
  Receive Date: 20180515
  Receipt Date: 20180515
  Transmission Date: 20180711
  Serious: No
  Sender: FDA-Public Use
  Company Number: US-AKRON, INC.-2047800

PATIENT
  Sex: Female

DRUGS (1)
  1. BETAXOLOL. [Suspect]
     Active Substance: BETAXOLOL

REACTIONS (1)
  - Dry eye [None]
